FAERS Safety Report 4980404-9 (Version None)
Quarter: 2006Q2

REPORT INFORMATION
  Report Type: 
  Country: None (occurrence: None)
  Receive Date: 20060424
  Receipt Date: 20060124
  Transmission Date: 20061013
  Serious: Yes (Hospitalization)
  Sender: FDA-Public Use
  Company Number: US-GLAXOSMITHKLINE-A0590722A

PATIENT
  Age: 56 Year
  Sex: Female

DRUGS (6)
  1. REQUIP [Suspect]
     Indication: PARKINSON'S DISEASE
     Dosage: 8MG TWICE PER DAY
     Route: 048
     Dates: end: 20050501
  2. STALEVO 100 [Concomitant]
  3. SELEGILINE HCL [Concomitant]
  4. SINEMET [Concomitant]
  5. EFFEXOR XR [Concomitant]
  6. CALCIUM GLUCONATE [Concomitant]

REACTIONS (2)
  - EATING DISORDER [None]
  - GAMBLING [None]
